FAERS Safety Report 5044034-5 (Version None)
Quarter: 2006Q2

REPORT INFORMATION
  Report Type: 
  Country: None (occurrence: None)
  Receive Date: 20060601
  Receipt Date: 20060330
  Transmission Date: 20061013
  Serious: No
  Sender: FDA-Public Use
  Company Number: US200603007318

PATIENT
  Age: 69 Year
  Sex: Female

DRUGS (6)
  1. CYMBALTA [Suspect]
     Indication: NEUROPATHY
     Dosage: 30 MG
     Dates: start: 20060323, end: 20060327
  2. DILAUDID /CAN/ (HYDROMORPHONE HYDROCHLORIDE) [Concomitant]
  3. PERCOCET [Concomitant]
  4. IMODIUM [Concomitant]
  5. VALIUM /NET/ (DIAZEPAM) [Concomitant]
  6. PREDNISONE TAB [Concomitant]

REACTIONS (5)
  - DISTURBANCE IN ATTENTION [None]
  - DIZZINESS [None]
  - FALL [None]
  - FEELING ABNORMAL [None]
  - LIMB INJURY [None]
